FAERS Safety Report 9370222 (Version 1)
Quarter: 2013Q2

REPORT INFORMATION
  Report Type: Spontaneous
  Country: FR (occurrence: FR)
  Receive Date: 20130626
  Receipt Date: 20130626
  Transmission Date: 20140414
  Serious: Yes (Hospitalization)
  Sender: FDA-Public Use
  Company Number: FR-TEVA-413522ISR

PATIENT
  Age: 38 Year
  Sex: Female

DRUGS (5)
  1. CLOMIPRAMINE [Suspect]
     Indication: MAJOR DEPRESSION
     Dosage: INCREASED OVER 3D TO 75MG, THEN 100MG
     Route: 042
  2. CLOMIPRAMINE [Suspect]
     Dosage: 100MG, THEN ORAL
     Route: 042
  3. CLOMIPRAMINE [Suspect]
     Route: 048
  4. SALBUTAMOL [Concomitant]
     Indication: ASTHMA
     Route: 065
  5. ALPRAZOLAM [Concomitant]
     Dosage: 1.5 MILLIGRAM DAILY;
     Route: 065

REACTIONS (2)
  - Drug reaction with eosinophilia and systemic symptoms [Recovering/Resolving]
  - Diarrhoea [Unknown]
